FAERS Safety Report 4450828-7 (Version None)
Quarter: 2004Q3

REPORT INFORMATION
  Report Type: 
  Country: None (occurrence: None)
  Receive Date: 20040916
  Receipt Date: 20011002
  Transmission Date: 20050211
  Serious: Yes (Other)
  Sender: FDA-Public Use
  Company Number: US-BRISTOL-MYERS SQUIBB COMPANY-11037199

PATIENT
  Age: 32 Year
  Sex: Female

DRUGS (9)
  1. STADOL [Suspect]
  2. STADOL [Suspect]
  3. PROZAC [Concomitant]
  4. DARVOCET [Concomitant]
  5. IMITREX [Concomitant]
  6. LORTAB-7 [Concomitant]
  7. SKELAXIN [Concomitant]
  8. XANAX [Concomitant]
  9. VALIUM [Concomitant]

REACTIONS (5)
  - CONVULSION [None]
  - DEPENDENCE [None]
  - DEPRESSION [None]
  - LOSS OF CONSCIOUSNESS [None]
  - SUICIDAL IDEATION [None]
